FAERS Safety Report 10911991 (Version 1)
Quarter: 2015Q1

REPORT INFORMATION
  Report Type: Spontaneous
  Country: IN (occurrence: None)
  Receive Date: 20150309
  Receipt Date: 20150309
  Transmission Date: 20150721
  Serious: Yes (Other)
  Sender: FDA-Public Use
  Company Number: IN2015GSK029621

PATIENT
  Age: 14 Year
  Sex: Male

DRUGS (3)
  1. EFAVIRENZ (EFAVIRENZ) UNKNOWN [Suspect]
     Active Substance: EFAVIRENZ
     Indication: HIV INFECTION
  2. ZIDOVUDINE (ZIDOVUDINE) UNKNOWN) [Suspect]
     Active Substance: ZIDOVUDINE
     Indication: HIV INFECTION
  3. LAMIVUDINE. [Suspect]
     Active Substance: LAMIVUDINE
     Indication: HIV INFECTION

REACTIONS (7)
  - Abnormal behaviour [None]
  - Dyskinesia [None]
  - Fall [None]
  - Clumsiness [None]
  - Subacute sclerosing panencephalitis [None]
  - Myoclonus [None]
  - Disturbance in attention [None]
